FAERS Safety Report 7219927-0 (Version None)
Quarter: 2011Q1

REPORT INFORMATION
  Report Type: 
  Country: None (occurrence: None)
  Receive Date: 20110111
  Receipt Date: 20110106
  Transmission Date: 20110831
  Serious: Yes (Death, Hospitalization, Other)
  Sender: FDA-Public Use
  Company Number: PHEH2007US11345

PATIENT
  Sex: Male

DRUGS (30)
  1. PERCOCET [Concomitant]
     Dosage: 5/325MG
  2. XOPENEX [Concomitant]
  3. NASACORT [Concomitant]
  4. PROTONIX [Concomitant]
     Dosage: 40MG
  5. PREDNISONE [Concomitant]
     Dosage: 20MG
  6. ZOCOR [Concomitant]
     Dosage: 20MG
  7. SEREVENT [Concomitant]
  8. COLCHICINE [Concomitant]
     Dosage: 0.6
  9. FLOVENT [Concomitant]
  10. VITAMIN TAB [Concomitant]
  11. COMBIVENT                               /GFR/ [Concomitant]
  12. ACETYLCYSTEINE [Concomitant]
  13. CELEBREX [Concomitant]
  14. ASPIRIN [Concomitant]
     Dosage: 81MG DAILY
  15. MEDROL [Concomitant]
  16. VALIUM [Concomitant]
  17. FLEXERIL [Concomitant]
  18. DILAUDID [Concomitant]
  19. ZOMETA [Suspect]
     Dosage: 4 MG, UNK
     Dates: start: 20050114, end: 20060601
  20. DARVOCET-N 100 [Concomitant]
  21. PLAVIX [Concomitant]
     Dosage: 75MG DAILY
  22. ACTONEL [Suspect]
     Dosage: 35MG ONCE WEEKLY
  23. ZOLADEX [Concomitant]
  24. CEFTIN [Concomitant]
  25. INTERFERON [Concomitant]
  26. INSULIN [Concomitant]
  27. SKELAXIN [Concomitant]
     Dosage: 800MG
  28. GABAPENTIN [Concomitant]
     Dosage: 100MG THREE TIMES DAILY
  29. LEVAQUIN [Concomitant]
  30. CASODEX [Concomitant]

REACTIONS (23)
  - PULMONARY FIBROSIS [None]
  - PNEUMONIA [None]
  - DIABETES MELLITUS [None]
  - GASTROOESOPHAGEAL REFLUX DISEASE [None]
  - ACUTE RESPIRATORY FAILURE [None]
  - OSTEONECROSIS OF JAW [None]
  - TOOTH INFECTION [None]
  - CLAUSTROPHOBIA [None]
  - OBESITY [None]
  - ARTHRITIS [None]
  - COUGH [None]
  - GENERAL PHYSICAL HEALTH DETERIORATION [None]
  - PAIN [None]
  - DECREASED INTEREST [None]
  - DYSPNOEA [None]
  - HAEMOPTYSIS [None]
  - ANXIETY [None]
  - DISABILITY [None]
  - LUNG INFILTRATION [None]
  - SLEEP APNOEA SYNDROME [None]
  - SPINAL COMPRESSION FRACTURE [None]
  - INTERVERTEBRAL DISC PROTRUSION [None]
  - BACK PAIN [None]
